FAERS Safety Report 7380975-1 (Version None)
Quarter: 2011Q1

REPORT INFORMATION
  Report Type: 
  Country: None (occurrence: None)
  Receive Date: 20110329
  Receipt Date: 20101112
  Transmission Date: 20110831
  Serious: No
  Sender: FDA-Public Use
  Company Number: US-TYCO HEALTHCARE/MALLINCKRODT-T201002507

PATIENT
  Age: 65 Year
  Sex: Male

DRUGS (2)
  1. ULTRA-TECHNEKOW [Concomitant]
     Route: 042
  2. TECHNETIUM TC 99M SESTAMIBI [Suspect]
     Indication: SCAN MYOCARDIAL PERFUSION
     Dosage: UNK UNK, SINGLE
     Route: 042
     Dates: start: 20101110, end: 20101110

REACTIONS (1)
  - DRUG INEFFECTIVE [None]
